FAERS Safety Report 6936768-X (Version None)
Quarter: 2010Q3

REPORT INFORMATION
  Report Type: 
  Country: None (occurrence: None)
  Receive Date: 20100819
  Receipt Date: 20100804
  Transmission Date: 20110219
  Serious: Yes (Hospitalization, Other)
  Sender: FDA-Public Use
  Company Number: 2010PL000084

PATIENT
  Age: 62 Year
  Sex: Male

DRUGS (28)
  1. IMURAN [Suspect]
     Indication: CROHN'S DISEASE
     Dosage: 150 MG;
     Dates: end: 20091201
  2. TYSABRI [Suspect]
     Indication: CROHN'S DISEASE
     Dosage: 300 MG; QMON; IV
     Route: 042
     Dates: start: 20091201
  3. TEMAZEPAM [Concomitant]
  4. TRAMADOL HCL [Concomitant]
  5. POTASSIUM CHLORIDE [Concomitant]
  6. PYRIDOXINE HCL [Concomitant]
  7. METOPROLOL TARTRATE [Concomitant]
  8. PREDNISONE [Concomitant]
  9. TRAMADOL HCL [Concomitant]
  10. WARFARIN SODIUM [Concomitant]
  11. NITROGLYCERIN [Concomitant]
  12. DARVOCET-N 100 [Concomitant]
  13. COMBIVENT [Concomitant]
  14. VALACYCLOVIR [Concomitant]
  15. ONDANSETRON [Concomitant]
  16. LEVALBUTEROL HYDROCHLORIDE [Concomitant]
  17. DOXAZOSIN MESYLATE [Concomitant]
  18. ERGOCALCIFEROL [Concomitant]
  19. PRAVASTATIN [Concomitant]
  20. ZOLEDRONIC ACID [Concomitant]
  21. OMEPRAZOLE [Concomitant]
  22. ISOSORBIDE [Concomitant]
  23. VITAMIN C /00008001/ [Concomitant]
  24. ASPIRIN [Concomitant]
  25. FINASTERIDE [Concomitant]
  26. FLUDROCORTISONE [Concomitant]
  27. CALCIUM +D [Concomitant]
  28. VITAMIN B-12 [Concomitant]

REACTIONS (10)
  - ACNE [None]
  - ARTHRALGIA [None]
  - CHRONIC GASTROINTESTINAL BLEEDING [None]
  - DEEP VEIN THROMBOSIS [None]
  - DRUG INEFFECTIVE [None]
  - FATIGUE [None]
  - INTESTINAL OBSTRUCTION [None]
  - PNEUMONIA [None]
  - PULMONARY EMBOLISM [None]
  - THROMBOSIS [None]
